FAERS Safety Report 7070015-6 (Version None)
Quarter: 2010Q4

REPORT INFORMATION
  Report Type: 
  Country: None (occurrence: None)
  Receive Date: 20101028
  Receipt Date: 20100726
  Transmission Date: 20110411
  Serious: Yes (Hospitalization)
  Sender: FDA-Public Use
  Company Number: US-WYE-H16473610

PATIENT
  Age: 74 Year
  Sex: Male
  Weight: 74 kg

DRUGS (5)
  1. EFFEXOR [Suspect]
     Route: 048
  2. ALBUTEROL [Concomitant]
     Dosage: UNSPECIIFED DOSE QID
  3. ACETAMINOPHEN [Concomitant]
     Dosage: 650 MG PRN
  4. ZYPREXA [Concomitant]
  5. REMERON [Concomitant]

REACTIONS (1)
  - CEREBROVASCULAR ACCIDENT [None]
